FAERS Safety Report 4566529-0 (Version None)
Quarter: 2005Q1

REPORT INFORMATION
  Report Type: 
  Country: None (occurrence: None)
  Receive Date: 20050126
  Receipt Date: 20050126
  Transmission Date: 20050727
  Serious: Yes (Hospitalization)
  Sender: FDA-Public Use
  Company Number: None

PATIENT
  Age: 24 Year
  Sex: Male
  Weight: 76.2043 kg

DRUGS (5)
  1. ZIPRASODONE  20MG   PFIZER [Suspect]
     Indication: SCHIZOPHRENIA, PARANOID TYPE
     Dosage: 20MG  TWO TIMES/DAY  ORAL
     Route: 048
     Dates: start: 20030919, end: 20030920
  2. TEMAZEPAM [Concomitant]
  3. ARIPIPRAZOLE [Concomitant]
  4. COCAINE [Concomitant]
  5. MARIJUANA [Concomitant]

REACTIONS (1)
  - BRADYCARDIA [None]
